FAERS Safety Report 4913086-2 (Version None)
Quarter: 2006Q1

REPORT INFORMATION
  Report Type: 
  Country: None (occurrence: None)
  Receive Date: 20060210
  Receipt Date: 20060127
  Transmission Date: 20060701
  Serious: Yes (Death)
  Sender: FDA-Public Use
  Company Number: L05-USA-03935-11

PATIENT
  Age: 71 Year
  Sex: Female

DRUGS (5)
  1. CITALOPRAM [Suspect]
  2. METFORMIN [Suspect]
  3. KLONOPIN [Concomitant]
  4. GLYBURIDE [Concomitant]
  5. GLIBENCLAMIDE [Suspect]

REACTIONS (5)
  - BLOOD GLUCOSE DECREASED [None]
  - MENTAL STATUS CHANGES [None]
  - METABOLIC ACIDOSIS [None]
  - MULTIPLE DRUG OVERDOSE INTENTIONAL [None]
  - SEPTIC SHOCK [None]
